FAERS Safety Report 12818813 (Version 1)
Quarter: 2016Q4

REPORT INFORMATION
  Report Type: Spontaneous
  Country: US (occurrence: US)
  Receive Date: 20161006
  Receipt Date: 20161006
  Transmission Date: 20170207
  Serious: No
  Sender: FDA-Public Use
  Company Number: US-JNJFOC-20160704958

PATIENT
  Age: 58 Year
  Sex: Female
  Weight: 68.04 kg

DRUGS (2)
  1. ZYRTEC-D [Suspect]
     Active Substance: CETIRIZINE HYDROCHLORIDE\PSEUDOEPHEDRINE HYDROCHLORIDE
     Indication: SINUS CONGESTION
     Dosage: ONE TABLET A DAY, SOMETIMES SHE HAS TO TAKE TWO ZYRTEC IN A DAY
     Route: 048
  2. ZYRTEC-D [Suspect]
     Active Substance: CETIRIZINE HYDROCHLORIDE\PSEUDOEPHEDRINE HYDROCHLORIDE
     Indication: MULTIPLE ALLERGIES
     Dosage: ONE TABLET A DAY, SOMETIMES SHE HAS TO TAKE TWO ZYRTEC IN A DAY
     Route: 048

REACTIONS (2)
  - Product packaging issue [Unknown]
  - Incorrect drug administration duration [Unknown]
